FAERS Safety Report 7668611-8 (Version None)
Quarter: 2011Q3

REPORT INFORMATION
  Report Type: 
  Country: None (occurrence: None)
  Receive Date: 20110808
  Receipt Date: 20110808
  Transmission Date: 20111222
  Serious: Yes (Hospitalization)
  Sender: FDA-Public Use
  Company Number: None

PATIENT
  Age: 56 Year
  Sex: Male
  Weight: 113.39 kg

DRUGS (2)
  1. FLUOXETINE [Suspect]
     Indication: DEPRESSION
     Dosage: 40 MG
     Route: 048
     Dates: start: 20110729, end: 20110729
  2. FLUOXETINE [Concomitant]
     Dosage: 40 MG
     Route: 048

REACTIONS (3)
  - CONFUSIONAL STATE [None]
  - AMNESIA [None]
  - SEROTONIN SYNDROME [None]
